FAERS Safety Report 20853643 (Version 1)
Quarter: 2022Q2

REPORT INFORMATION
  Report Type: Spontaneous
  Country: KW (occurrence: KW)
  Receive Date: 20220520
  Receipt Date: 20220520
  Transmission Date: 20220721
  Serious: Yes (Other)
  Sender: FDA-Public Use
  Company Number: KW-SUN PHARMACEUTICAL INDUSTRIES LTD-2022RR-337549

PATIENT
  Age: 81 Year
  Sex: Female

DRUGS (4)
  1. NOREPINEPHRINE [Suspect]
     Active Substance: NOREPINEPHRINE
     Indication: Hypotension
     Dosage: UNK
     Route: 042
  2. MIDODRINE [Suspect]
     Active Substance: MIDODRINE
     Indication: Hypotension
     Dosage: 5 MILLIGRAM
     Route: 065
  3. MIDODRINE [Suspect]
     Active Substance: MIDODRINE
     Dosage: 7 MILLIGRAM
     Route: 065
  4. MIDODRINE [Suspect]
     Active Substance: MIDODRINE
     Dosage: 10 MILLIGRAM
     Route: 065

REACTIONS (1)
  - Renal impairment [Unknown]
